FAERS Safety Report 6275488-4 (Version None)
Quarter: 2009Q3

REPORT INFORMATION
  Report Type: 
  Country: None (occurrence: None)
  Receive Date: 20090721
  Receipt Date: 20090715
  Transmission Date: 20100115
  Serious: Yes (Hospitalization, Other)
  Sender: FDA-Public Use
  Company Number: US-ABBOTT-09P-163-0585546-00

PATIENT

DRUGS (4)
  1. HUMIRA [Suspect]
     Indication: RHEUMATOID ARTHRITIS
  2. CELEXA [Concomitant]
     Indication: DEPRESSION
  3. ICAR C  VITAMIN [Concomitant]
     Indication: DRUG USE FOR UNKNOWN INDICATION
  4. GEODON [Concomitant]
     Indication: PSYCHOTIC DISORDER

REACTIONS (3)
  - DRUG DOSE OMISSION [None]
  - MENTAL DISORDER [None]
  - PSYCHIATRIC EVALUATION [None]
